FAERS Safety Report 7761458-3 (Version None)
Quarter: 2011Q3

REPORT INFORMATION
  Report Type: 
  Country: None (occurrence: None)
  Receive Date: 20110920
  Receipt Date: 20110916
  Transmission Date: 20111222
  Serious: Yes (Life-Threatening, Hospitalization)
  Sender: FDA-Public Use
  Company Number: JP-JNJFOC-20101108482

PATIENT
  Sex: Female
  Weight: 41 kg

DRUGS (5)
  1. DOXIL [Suspect]
     Indication: OVARIAN EPITHELIAL CANCER
     Dosage: CYCLE 1
     Route: 042
     Dates: start: 20100901, end: 20100901
  2. MEROPENEM [Suspect]
     Indication: FEBRILE NEUTROPENIA
     Route: 041
     Dates: start: 20100626, end: 20101021
  3. NEUTROGIN [Suspect]
     Indication: FEBRILE NEUTROPENIA
     Route: 058
     Dates: start: 20100623, end: 20101020
  4. KYTRIL [Concomitant]
     Indication: ANTIEMETIC SUPPORTIVE CARE
     Route: 042
     Dates: start: 20100609, end: 20100929
  5. DOXIL [Suspect]
     Dosage: CYCLE 2
     Route: 042
     Dates: start: 20100929, end: 20100929

REACTIONS (4)
  - FEBRILE NEUTROPENIA [None]
  - INTERSTITIAL LUNG DISEASE [None]
  - BONE MARROW FAILURE [None]
  - PYREXIA [None]
